FAERS Safety Report 23527053 (Version 1)
Quarter: 2024Q1

REPORT INFORMATION
  Report Type: Spontaneous
  Country: US (occurrence: None)
  Receive Date: 20240215
  Receipt Date: 20240215
  Transmission Date: 20240410
  Serious: Yes (Hospitalization)
  Sender: FDA-Public Use
  Company Number: None

PATIENT
  Sex: Male
  Weight: 106 kg

DRUGS (4)
  1. CISPLATIN [Suspect]
     Active Substance: CISPLATIN
  2. FILGRASTIM [Concomitant]
     Active Substance: FILGRASTIM
  3. IFOSFAMIDE [Concomitant]
  4. TAXOL [Concomitant]
     Active Substance: PACLITAXEL

REACTIONS (8)
  - Infection [None]
  - Neutropenia [None]
  - Pyrexia [None]
  - Malaise [None]
  - Tachycardia [None]
  - Escherichia infection [None]
  - Bacterial test positive [None]
  - Enterococcal infection [None]

NARRATIVE: CASE EVENT DATE: 20190719
